FAERS Safety Report 5860561-2 (Version None)
Quarter: 2008Q3

REPORT INFORMATION
  Report Type: 
  Country: None (occurrence: None)
  Receive Date: 20080827
  Receipt Date: 20070905
  Transmission Date: 20090109
  Serious: No
  Sender: FDA-Public Use
  Company Number: US-ABBOTT-07P-163-0416638-00

PATIENT
  Sex: Female
  Weight: 61.744 kg

DRUGS (8)
  1. NIASPAN [Suspect]
     Indication: BLOOD CHOLESTEROL
     Route: 048
     Dates: start: 20010101, end: 20070819
  2. NIASPAN [Suspect]
     Route: 048
     Dates: start: 20070820
  3. OMICOR [Concomitant]
     Indication: BLOOD CHOLESTEROL
  4. VYTORIN [Concomitant]
     Indication: BLOOD CHOLESTEROL
  5. IBANDRONATE SODIUM [Concomitant]
     Indication: OSTEOPOROSIS PROPHYLAXIS
  6. ACETYLSALICYLIC ACID SRT [Concomitant]
     Indication: CARDIAC DISORDER
  7. ACETYLSALICYLIC ACID SRT [Concomitant]
     Indication: BLOOD CHOLESTEROL
  8. ARMOUR [Concomitant]
     Indication: HYPOTHYROIDISM

REACTIONS (1)
  - HEADACHE [None]
